FAERS Safety Report 6950036-1 (Version None)
Quarter: 2010Q3

REPORT INFORMATION
  Report Type: 
  Country: None (occurrence: None)
  Receive Date: 20100828
  Receipt Date: 20100127
  Transmission Date: 20110219
  Serious: No
  Sender: FDA-Public Use
  Company Number: US-ABBOTT-10P-163-0622592-00

PATIENT
  Sex: Female
  Weight: 88.53 kg

DRUGS (1)
  1. NIASPAN [Suspect]
     Indication: BLOOD TRIGLYCERIDES INCREASED
     Dosage: 500MG AT BEDTIME
     Route: 048
     Dates: start: 20090101, end: 20100126

REACTIONS (1)
  - BLOOD TRIGLYCERIDES INCREASED [None]
